FAERS Safety Report 14388395 (Version 3)
Quarter: 2021Q3

REPORT INFORMATION
  Report Type: Spontaneous
  Country: US (occurrence: US)
  Receive Date: 20180115
  Receipt Date: 20210716
  Transmission Date: 20211014
  Serious: Yes (Other)
  Sender: FDA-Public Use
  Company Number: US-SA-2017SA204083

PATIENT
  Age: 65 Year
  Sex: Female
  Weight: 95 kg

DRUGS (11)
  1. CARBOPLATIN. [Concomitant]
     Active Substance: CARBOPLATIN
  2. BENAZEPRIL HYDROCHLORIDE. [Concomitant]
     Active Substance: BENAZEPRIL HYDROCHLORIDE
     Dosage: UNK
     Route: 065
  3. PARAPLATIN [Concomitant]
     Active Substance: CARBOPLATIN
     Indication: BREAST CANCER STAGE III
  4. TAXOTERE [Suspect]
     Active Substance: DOCETAXEL
     Indication: BREAST CANCER STAGE III
     Dosage: 152 MG,Q3W
     Route: 065
     Dates: start: 20111004, end: 20111004
  5. PARACETAMOL [Concomitant]
     Active Substance: ACETAMINOPHEN
  6. HYDROCHLOROTHIAZIDE. [Concomitant]
     Active Substance: HYDROCHLOROTHIAZIDE
     Dosage: UNK
  7. ANZEMET [Concomitant]
     Active Substance: DOLASETRON MESYLATE
     Dosage: UNK
     Route: 065
  8. TAXOL [Concomitant]
     Active Substance: PACLITAXEL
  9. TAXOTERE [Suspect]
     Active Substance: DOCETAXEL
     Dosage: 152 MG,Q3W
     Route: 065
     Dates: start: 20120117, end: 20120117
  10. HERCEPTIN [Concomitant]
     Active Substance: TRASTUZUMAB
     Indication: BREAST CANCER STAGE III
  11. DEXAMETHASONE. [Concomitant]
     Active Substance: DEXAMETHASONE

REACTIONS (2)
  - Psychological trauma [Unknown]
  - Alopecia [Recovering/Resolving]

NARRATIVE: CASE EVENT DATE: 201207
